FAERS Safety Report 18013380 (Version 1)
Quarter: 2020Q3

REPORT INFORMATION
  Report Type: Spontaneous
  Country: US (occurrence: US)
  Receive Date: 20200710
  Receipt Date: 20200710
  Transmission Date: 20201103
  Serious: No
  Sender: FDA-Public Use
  Company Number: None

PATIENT
  Age: 82 Year
  Sex: Female
  Weight: 73.7 kg

DRUGS (4)
  1. CARFILZOMIB [Suspect]
     Active Substance: CARFILZOMIB
     Indication: PLASMA CELL MYELOMA
     Dosage: ?          OTHER FREQUENCY:ONCE;?
     Route: 042
     Dates: start: 20200421, end: 20200421
  2. CARFILZOMIB [Suspect]
     Active Substance: CARFILZOMIB
     Indication: PLASMA CELL MYELOMA
     Dosage: ?          OTHER FREQUENCY:ONCE;?
     Route: 042
     Dates: start: 20200415, end: 20200415
  3. DEXTROSE 5% [Concomitant]
     Active Substance: DEXTROSE
     Dates: start: 20200421
  4. DEXTROSE 5% [Concomitant]
     Active Substance: DEXTROSE
     Dates: start: 20200415

REACTIONS (5)
  - Acute kidney injury [None]
  - Hypertension [None]
  - Thrombotic microangiopathy [None]
  - Thrombocytopenia [None]
  - Haemolysis [None]

NARRATIVE: CASE EVENT DATE: 20200415
